FAERS Safety Report 22232635 (Version 8)
Quarter: 2023Q4

REPORT INFORMATION
  Report Type: Spontaneous
  Country: US (occurrence: US)
  Receive Date: 20230420
  Receipt Date: 20231117
  Transmission Date: 20240110
  Serious: No
  Sender: FDA-Public Use
  Company Number: US-BRISTOL-MYERS SQUIBB COMPANY-2023-055388

PATIENT
  Age: 79 Year
  Sex: Female
  Weight: 62.6 kg

DRUGS (2)
  1. POMALYST [Suspect]
     Active Substance: POMALIDOMIDE
     Indication: Amyloidosis
     Dosage: FREQ: 3WKS ON, 1WK OFF
     Route: 048
     Dates: start: 20230401
  2. POMALYST [Suspect]
     Active Substance: POMALIDOMIDE
     Dosage: FREQ: 3WKS ON, 1WK OFF
     Route: 048
     Dates: start: 20230401

REACTIONS (13)
  - Hordeolum [Unknown]
  - Chest discomfort [Unknown]
  - Dry mouth [Unknown]
  - Pruritus [Unknown]
  - Off label use [Unknown]
  - Rash [Recovering/Resolving]
  - Chest pain [Unknown]
  - Fatigue [Unknown]
  - Urinary tract infection [Unknown]
  - Joint swelling [Unknown]
  - Erythema [Unknown]
  - Peripheral swelling [Recovering/Resolving]
  - Back pain [Recovering/Resolving]
